FAERS Safety Report 5387400-0 (Version None)
Quarter: 2007Q3

REPORT INFORMATION
  Report Type: 
  Country: None (occurrence: None)
  Receive Date: 20070711
  Receipt Date: 20070629
  Transmission Date: 20080115
  Serious: Yes (Hospitalization)
  Sender: FDA-Public Use
  Company Number: GXKR2007IT05646

PATIENT
  Age: 64 Year
  Sex: Female

DRUGS (2)
  1. CEFTRIAXONE [Suspect]
     Indication: BRONCHITIS
     Dosage: 1000 MG, INTRAMUSCULAR
     Route: 030
     Dates: start: 20070420, end: 20070422
  2. DIURETICS (NO INGREDIENTS/SUBSTANCES) [Concomitant]

REACTIONS (4)
  - ERYTHEMA [None]
  - NAUSEA [None]
  - PRURITUS [None]
  - THROAT TIGHTNESS [None]
